FAERS Safety Report 6940531-3 (Version None)
Quarter: 2010Q3

REPORT INFORMATION
  Report Type: 
  Country: None (occurrence: None)
  Receive Date: 20100825
  Receipt Date: 20100816
  Transmission Date: 20110219
  Serious: Yes (Other)
  Sender: FDA-Public Use
  Company Number: AT-PFIZER INC-2010095741

PATIENT
  Age: 39 Year
  Sex: Female

DRUGS (1)
  1. SAYANA [Suspect]
     Indication: CONTRACEPTION
     Dosage: UNK
     Route: 058

REACTIONS (3)
  - HYPERPROLACTINAEMIA [None]
  - INCORRECT DOSE ADMINISTERED [None]
  - INJECTION SITE NECROSIS [None]
